FAERS Safety Report 9219795 (Version 1)
Quarter: 2013Q1

REPORT INFORMATION
  Report Type: Spontaneous
  Country: US (occurrence: None)
  Receive Date: 20120831
  Receipt Date: 20120831
  Transmission Date: 20140127
  Serious: No
  Sender: FDA-Public Use
  Company Number: 1000030293

PATIENT
  Age: 76 Year
  Sex: Female

DRUGS (10)
  1. DALIRESP [Suspect]
     Indication: CHRONIC OBSTRUCTIVE PULMONARY DISEASE
     Dates: start: 20120503
  2. ERYTHROMYCIN [Suspect]
     Indication: SINUSITIS
  3. SYNTHROID (LEVOTHYROXINE SODIUM) (LEVOTHYROXINE SODIUM) [Concomitant]
  4. LISINOPRIL (LISINOPRIL) (LISINOPRIL) [Concomitant]
  5. METFORMIN (METFORMIN) (METFORMIN) [Concomitant]
  6. NORVASC (AMLODIPINE BESILATE) (AMLODIPINE BESILATE) [Concomitant]
  7. VITAMIN B12 (VITAMIN B12) (VITAMIN B12) [Concomitant]
  8. VITAMIN E (VITAMIN E) (VITAMIN E) [Concomitant]
  9. METAMUCIL (PSYLLIUM) (PSYLLIUM) [Concomitant]
  10. ECOTRIN (ACETYLSALICYLIC ACID) (ACETYLSALICYLIC ACID) [Concomitant]

REACTIONS (4)
  - Dizziness [None]
  - Diarrhoea [None]
  - Gastrooesophageal reflux disease [None]
  - Feeling drunk [None]
